FAERS Safety Report 22257468 (Version 1)
Quarter: 2023Q2

REPORT INFORMATION
  Report Type: Spontaneous
  Country: US (occurrence: US)
  Receive Date: 20230427
  Receipt Date: 20230427
  Transmission Date: 20230722
  Serious: No
  Sender: FDA-Public Use
  Company Number: US-SUN PHARMACEUTICAL INDUSTRIES LTD-2023R1-383746

PATIENT
  Age: 18 Year
  Sex: Male

DRUGS (4)
  1. DEXTROMETHORPHAN HYDROBROMIDE\GUAIFENESIN [Suspect]
     Active Substance: DEXTROMETHORPHAN HYDROBROMIDE\GUAIFENESIN
     Indication: Cough
     Dosage: UNK
     Route: 065
     Dates: start: 20230307
  2. DEXTROMETHORPHAN HYDROBROMIDE\GUAIFENESIN [Suspect]
     Active Substance: DEXTROMETHORPHAN HYDROBROMIDE\GUAIFENESIN
     Indication: Secretion discharge
     Dosage: UNK
     Route: 065
     Dates: start: 20230310
  3. DEXTROMETHORPHAN HYDROBROMIDE\GUAIFENESIN [Suspect]
     Active Substance: DEXTROMETHORPHAN HYDROBROMIDE\GUAIFENESIN
     Indication: Nasal congestion
  4. Zyxal [Concomitant]
     Indication: Hypersensitivity
     Dosage: UNK (EVERY DAY)
     Route: 065

REACTIONS (2)
  - Malaise [Unknown]
  - Dizziness [Unknown]
